FAERS Safety Report 5579744-4 (Version None)
Quarter: 2008Q1

REPORT INFORMATION
  Report Type: 
  Country: None (occurrence: None)
  Receive Date: 20080102
  Receipt Date: 20071226
  Transmission Date: 20080703
  Serious: Yes (Hospitalization, Other)
  Sender: FDA-Public Use
  Company Number: ES-PFIZER INC-2007107915

PATIENT
  Age: 68 Year
  Sex: Male

DRUGS (3)
  1. NORVASC [Suspect]
     Route: 048
     Dates: start: 20060101, end: 20061031
  2. TORSEMIDE [Suspect]
     Route: 048
     Dates: start: 20060101, end: 20061026
  3. ATACAND [Suspect]
     Route: 048
     Dates: start: 20060101, end: 20061026

REACTIONS (1)
  - RENAL FAILURE CHRONIC [None]
